FAERS Safety Report 26158286 (Version 1)
Quarter: 2025Q4

REPORT INFORMATION
  Report Type: Spontaneous
  Country: EU (occurrence: EU)
  Receive Date: 20251215
  Receipt Date: 20251215
  Transmission Date: 20260118
  Serious: Yes (Other)
  Sender: MYLAN
  Company Number: None

PATIENT
  Age: 62 Year
  Sex: Female
  Weight: 88 kg

DRUGS (32)
  1. PREDNISONE [Suspect]
     Active Substance: PREDNISONE
     Indication: Thrombotic thrombocytopenic purpura
     Dosage: 90 MILLIGRAM, QD
     Route: 061
     Dates: start: 20251022
  2. PREDNISONE [Suspect]
     Active Substance: PREDNISONE
     Dosage: 90 MILLIGRAM, QD
     Route: 048
     Dates: start: 20251022
  3. PREDNISONE [Suspect]
     Active Substance: PREDNISONE
     Dosage: 90 MILLIGRAM, QD
     Route: 048
     Dates: start: 20251022
  4. PREDNISONE [Suspect]
     Active Substance: PREDNISONE
     Dosage: 90 MILLIGRAM, QD
     Route: 061
     Dates: start: 20251022
  5. CABLIVI [Suspect]
     Active Substance: CAPLACIZUMAB-YHDP
     Indication: Thrombotic thrombocytopenic purpura
     Dosage: 1 DOSAGE FORM, 1 TOTAL
     Dates: start: 20251021, end: 20251026
  6. CABLIVI [Suspect]
     Active Substance: CAPLACIZUMAB-YHDP
     Dosage: 1 DOSAGE FORM, 1 TOTAL
     Route: 042
     Dates: start: 20251021, end: 20251026
  7. CABLIVI [Suspect]
     Active Substance: CAPLACIZUMAB-YHDP
     Dosage: 1 DOSAGE FORM, 1 TOTAL
     Route: 042
     Dates: start: 20251021, end: 20251026
  8. CABLIVI [Suspect]
     Active Substance: CAPLACIZUMAB-YHDP
     Dosage: 1 DOSAGE FORM, 1 TOTAL
     Dates: start: 20251021, end: 20251026
  9. RITUXIMAB [Suspect]
     Active Substance: RITUXIMAB
     Indication: Thrombotic thrombocytopenic purpura
     Dosage: 375 MILLIGRAM, 1 TOTAL
     Route: 042
     Dates: start: 20251022, end: 20251022
  10. RITUXIMAB [Suspect]
     Active Substance: RITUXIMAB
     Dosage: 375 MILLIGRAM, 1 TOTAL
     Dates: start: 20251022, end: 20251022
  11. RITUXIMAB [Suspect]
     Active Substance: RITUXIMAB
     Dosage: 375 MILLIGRAM, 1 TOTAL
     Dates: start: 20251022, end: 20251022
  12. RITUXIMAB [Suspect]
     Active Substance: RITUXIMAB
     Dosage: 375 MILLIGRAM, 1 TOTAL
     Route: 042
     Dates: start: 20251022, end: 20251022
  13. RITUXIMAB [Suspect]
     Active Substance: RITUXIMAB
     Dosage: 375 MILLIGRAM, 1 TOTAL
     Route: 042
     Dates: start: 20251023, end: 20251023
  14. RITUXIMAB [Suspect]
     Active Substance: RITUXIMAB
     Dosage: 375 MILLIGRAM, 1 TOTAL
     Dates: start: 20251023, end: 20251023
  15. RITUXIMAB [Suspect]
     Active Substance: RITUXIMAB
     Dosage: 375 MILLIGRAM, 1 TOTAL
     Dates: start: 20251023, end: 20251023
  16. RITUXIMAB [Suspect]
     Active Substance: RITUXIMAB
     Dosage: 375 MILLIGRAM, 1 TOTAL
     Route: 042
     Dates: start: 20251023, end: 20251023
  17. RITUXIMAB [Suspect]
     Active Substance: RITUXIMAB
     Dosage: 750 MILLIGRAM, 1 TOTAL
     Dates: start: 20251029, end: 20251029
  18. RITUXIMAB [Suspect]
     Active Substance: RITUXIMAB
     Dosage: 750 MILLIGRAM, 1 TOTAL
     Dates: start: 20251029, end: 20251029
  19. RITUXIMAB [Suspect]
     Active Substance: RITUXIMAB
     Dosage: 750 MILLIGRAM, 1 TOTAL
     Route: 042
     Dates: start: 20251029, end: 20251029
  20. RITUXIMAB [Suspect]
     Active Substance: RITUXIMAB
     Dosage: 750 MILLIGRAM, 1 TOTAL
     Route: 042
     Dates: start: 20251029, end: 20251029
  21. RITUXIMAB [Suspect]
     Active Substance: RITUXIMAB
     Dosage: 700 MILLIGRAM, 1 TOTAL
     Dates: start: 20251104, end: 20251104
  22. RITUXIMAB [Suspect]
     Active Substance: RITUXIMAB
     Dosage: 700 MILLIGRAM, 1 TOTAL
     Dates: start: 20251104, end: 20251104
  23. RITUXIMAB [Suspect]
     Active Substance: RITUXIMAB
     Dosage: 700 MILLIGRAM, 1 TOTAL
     Route: 042
     Dates: start: 20251104, end: 20251104
  24. RITUXIMAB [Suspect]
     Active Substance: RITUXIMAB
     Dosage: 700 MILLIGRAM, 1 TOTAL
     Route: 042
     Dates: start: 20251104, end: 20251104
  25. CAFFEINE\IBUPROFEN [Suspect]
     Active Substance: CAFFEINE\IBUPROFEN
     Indication: Back pain
     Dosage: 3 DOSAGE FORM, 1 TOTAL
     Route: 061
     Dates: start: 20251018, end: 20251018
  26. CAFFEINE\IBUPROFEN [Suspect]
     Active Substance: CAFFEINE\IBUPROFEN
     Dosage: 3 DOSAGE FORM, 1 TOTAL
     Route: 061
     Dates: start: 20251018, end: 20251018
  27. CAFFEINE\IBUPROFEN [Suspect]
     Active Substance: CAFFEINE\IBUPROFEN
     Dosage: 3 DOSAGE FORM, 1 TOTAL
     Route: 048
     Dates: start: 20251018, end: 20251018
  28. CAFFEINE\IBUPROFEN [Suspect]
     Active Substance: CAFFEINE\IBUPROFEN
     Dosage: 3 DOSAGE FORM, 1 TOTAL
     Route: 048
     Dates: start: 20251018, end: 20251018
  29. CAFFEINE\IBUPROFEN [Suspect]
     Active Substance: CAFFEINE\IBUPROFEN
     Dosage: 2 DOSAGE FORM, 1 TOTAL
     Route: 061
     Dates: start: 20251019, end: 20251019
  30. CAFFEINE\IBUPROFEN [Suspect]
     Active Substance: CAFFEINE\IBUPROFEN
     Dosage: 2 DOSAGE FORM, 1 TOTAL
     Route: 061
     Dates: start: 20251019, end: 20251019
  31. CAFFEINE\IBUPROFEN [Suspect]
     Active Substance: CAFFEINE\IBUPROFEN
     Dosage: 2 DOSAGE FORM, 1 TOTAL
     Route: 048
     Dates: start: 20251019, end: 20251019
  32. CAFFEINE\IBUPROFEN [Suspect]
     Active Substance: CAFFEINE\IBUPROFEN
     Dosage: 2 DOSAGE FORM, 1 TOTAL
     Route: 048
     Dates: start: 20251019, end: 20251019

REACTIONS (1)
  - Ischaemic stroke [Not Recovered/Not Resolved]

NARRATIVE: CASE EVENT DATE: 20251024
